FAERS Safety Report 5174731-2 (Version None)
Quarter: 2006Q4

REPORT INFORMATION
  Report Type: 
  Country: None (occurrence: None)
  Receive Date: 20061206
  Receipt Date: 20061122
  Transmission Date: 20070319
  Serious: Yes (Other)
  Sender: FDA-Public Use
  Company Number: 2006113274

PATIENT
  Age: 18 Year
  Sex: Male

DRUGS (3)
  1. DIFLUCAN [Suspect]
     Indication: KERATITIS FUNGAL
     Dosage: TOPICAL
     Route: 061
  2. LEVOFLOXACIN [Concomitant]
  3. ALL OTHER THERAPEUTIC PRODUCTS (ALL OTHER THERAPEUTIC PRODUCTS) [Concomitant]

REACTIONS (4)
  - CORNEAL OPACITY [None]
  - DRUG INEFFECTIVE [None]
  - EYE SWELLING [None]
  - OCULAR HYPERAEMIA [None]
